FAERS Safety Report 23721433 (Version 1)
Quarter: 2024Q2

REPORT INFORMATION
  Report Type: Spontaneous
  Country: NL (occurrence: NL)
  Receive Date: 20240409
  Receipt Date: 20240409
  Transmission Date: 20240716
  Serious: Yes (Other)
  Sender: FDA-Public Use
  Company Number: None

PATIENT
  Age: 61 Year
  Sex: Female
  Weight: 89 kg

DRUGS (1)
  1. LISINOPRIL [Suspect]
     Active Substance: LISINOPRIL
     Indication: Hypertension
     Dosage: 1X1 PIECE,BRAND NAME NOT SPECIFIED
     Route: 065
     Dates: start: 20240225, end: 20240227

REACTIONS (12)
  - Swollen tongue [Recovering/Resolving]
  - Hyperhidrosis [Recovering/Resolving]
  - Pharyngeal swelling [Recovering/Resolving]
  - Retching [Recovering/Resolving]
  - Dyspnoea [Recovering/Resolving]
  - Swelling face [Recovering/Resolving]
  - Presyncope [Recovering/Resolving]
  - Dizziness [Recovering/Resolving]
  - Nausea [Recovering/Resolving]
  - Abdominal pain [Recovering/Resolving]
  - Back pain [Recovering/Resolving]
  - Diarrhoea [Recovering/Resolving]
